FAERS Safety Report 5460879-1 (Version None)
Quarter: 2007Q3

REPORT INFORMATION
  Report Type: 
  Country: None (occurrence: None)
  Receive Date: 20070827
  Receipt Date: 20060906
  Transmission Date: 20080115
  Serious: Yes (Other)
  Sender: FDA-Public Use
  Company Number: 2006-0010168

PATIENT
  Age: 54 Year
  Sex: Male

DRUGS (2)
  1. VISTIDE [Suspect]
     Indication: CYTOMEGALOVIRUS CHORIORETINITIS
  2. FUZEON [Concomitant]

REACTIONS (1)
  - RENAL FAILURE [None]
